FAERS Safety Report 10178535 (Version 1)
Quarter: 2014Q2

REPORT INFORMATION
  Report Type: Spontaneous
  Country: FR (occurrence: FR)
  Receive Date: 20140519
  Receipt Date: 20140519
  Transmission Date: 20141212
  Serious: Yes (Hospitalization)
  Sender: FDA-Public Use
  Company Number: FR-ACCORD-023739

PATIENT
  Age: 69 Year
  Sex: Female

DRUGS (9)
  1. FLUOROURACIL [Suspect]
     Indication: ADENOCARCINOMA PANCREAS
     Dosage: 0.667 DF (2 DF, 1 IN 1 MONTH)
     Route: 042
     Dates: start: 20140311
  2. OXALIPLATIN ACCORD [Suspect]
     Indication: ADENOCARCINOMA PANCREAS
     Dosage: 200 MG/40 ML (2 DOSAGE FORM, 1 IN 1 MONTH)
     Route: 042
     Dates: start: 20140311
  3. FOLIC ACID [Suspect]
     Indication: ADENOCARCINOMA PANCREAS
     Dosage: 0.0667 DOSAGE FORM (2 DF, 1 IN 1 MONTH)
     Route: 042
     Dates: start: 20140311
  4. IXPRIM [Concomitant]
     Route: 048
  5. ACETYLSALICYLIC ACID [Concomitant]
     Dosage: 1 DF (1 IN 1 DAY), IN THE LONG TERM
     Route: 048
  6. TEMERIT [Concomitant]
     Dosage: 1 DF (1 IN 1 DAY), IN THE LONG TERM
     Route: 048
  7. SIMVASTATIN [Concomitant]
     Route: 048
  8. COVERAM [Concomitant]
  9. MACROGOL/MACROGOL STEARATE [Concomitant]
     Dosage: 2 DF (1 IN 1 DAY), IN THE LONG TERM
     Route: 048

REACTIONS (4)
  - Off label use [Unknown]
  - Chest discomfort [Recovered/Resolved]
  - Dyspnoea [Recovered/Resolved]
  - Choking sensation [Recovered/Resolved]
